FAERS Safety Report 5127869-X (Version None)
Quarter: 2006Q4

REPORT INFORMATION
  Report Type: 
  Country: None (occurrence: None)
  Receive Date: 20061010
  Receipt Date: 20060929
  Transmission Date: 20070319
  Serious: Yes (Other)
  Sender: FDA-Public Use
  Company Number: GBWYE079929SEP06

PATIENT

DRUGS (1)
  1. EFFEXOR [Suspect]
     Route: 064

REACTIONS (3)
  - CEREBRAL HAEMORRHAGE FOETAL [None]
  - CEREBRAL PALSY [None]
  - DRUG EXPOSURE DURING PREGNANCY [None]
